FAERS Safety Report 9220612 (Version 1)
Quarter: 2013Q2

REPORT INFORMATION
  Report Type: Spontaneous
  Country: US (occurrence: US)
  Receive Date: 20130409
  Receipt Date: 20130409
  Transmission Date: 20140414
  Serious: No
  Sender: FDA-Public Use
  Company Number: US-009507513-1304USA003988

PATIENT
  Sex: Female

DRUGS (1)
  1. DR. SCHOLLS CORN REMOVERS [Suspect]
     Indication: HYPERKERATOSIS
     Dosage: UNK, QD
     Route: 061
     Dates: start: 20121023

REACTIONS (3)
  - Urticaria [Unknown]
  - Inappropriate schedule of drug administration [Unknown]
  - Overdose [Unknown]
